FAERS Safety Report 7239547-1 (Version None)
Quarter: 2011Q1

REPORT INFORMATION
  Report Type: 
  Country: None (occurrence: None)
  Receive Date: 20110121
  Receipt Date: 20100218
  Transmission Date: 20110831
  Serious: No
  Sender: FDA-Public Use
  Company Number: US-PFIZER INC-2010022159

PATIENT
  Age: 75 Year
  Sex: Male

DRUGS (2)
  1. GLUCOTROL XL [Concomitant]
  2. PROCARDIA [Suspect]

REACTIONS (2)
  - DRUG INEFFECTIVE [None]
  - UNEVALUABLE EVENT [None]
